FAERS Safety Report 6201053-0 (Version None)
Quarter: 2009Q2

REPORT INFORMATION
  Report Type: 
  Country: None (occurrence: None)
  Receive Date: 20090526
  Receipt Date: 20090522
  Transmission Date: 20091009
  Serious: Yes (Other)
  Sender: FDA-Public Use
  Company Number: US-BRISTOL-MYERS SQUIBB COMPANY-14635221

PATIENT
  Age: 75 Year
  Sex: Male

DRUGS (2)
  1. ARIPIPRAZOLE [Suspect]
     Indication: MAJOR DEPRESSION
  2. VENLAFAXINE HCL [Concomitant]
     Dosage: EXTENDED-RELEASE VENLAFAXINE

REACTIONS (1)
  - SLEEP APNOEA SYNDROME [None]
